FAERS Safety Report 5843796-4 (Version None)
Quarter: 2008Q3

REPORT INFORMATION
  Report Type: 
  Country: None (occurrence: None)
  Receive Date: 20080813
  Receipt Date: 20080805
  Transmission Date: 20090109
  Serious: Yes (Other)
  Sender: FDA-Public Use
  Company Number: US-AMGEN-QUU299354

PATIENT
  Age: 64 Year
  Sex: Female

DRUGS (9)
  1. ENBREL [Suspect]
     Indication: RHEUMATOID ARTHRITIS
     Dates: start: 20000101, end: 20070101
  2. WELLBUTRIN [Concomitant]
  3. SIMVASTATIN [Concomitant]
  4. METHOTREXATE [Concomitant]
  5. FOSAMAX [Concomitant]
  6. COUMADIN [Concomitant]
  7. LORTAB [Concomitant]
  8. TYLENOL [Concomitant]
  9. SYNTHROID [Concomitant]

REACTIONS (3)
  - DEMYELINATION [None]
  - ENCEPHALOPATHY [None]
  - OPTIC NEURITIS [None]
